FAERS Safety Report 9896123 (Version 1)
Quarter: 2014Q1

REPORT INFORMATION
  Report Type: Spontaneous
  Country: US (occurrence: US)
  Receive Date: 20140213
  Receipt Date: 20140213
  Transmission Date: 20141002
  Serious: No
  Sender: FDA-Public Use
  Company Number: US-BRISTOL-MYERS SQUIBB COMPANY-19694777

PATIENT
  Age: 59 Year
  Sex: Male
  Weight: 108.84 kg

DRUGS (7)
  1. ABATACEPT SUBQ INJECTION 125MG/ML [Suspect]
     Indication: PSORIATIC ARTHROPATHY
     Dosage: 1DF=125MG/ML
     Route: 058
  2. DIOVAN [Concomitant]
     Dosage: TAB
  3. METHOTREXATE [Concomitant]
     Dosage: TAB
  4. WELLBUTRIN [Concomitant]
     Dosage: TAB SR
  5. SIMVASTATIN TAB [Concomitant]
  6. ASPIRIN [Concomitant]
     Dosage: ADLT TAB
  7. FLONASE [Concomitant]
     Dosage: FLONASE SPR 0.05%

REACTIONS (2)
  - Pain [Unknown]
  - Off label use [Unknown]
